FAERS Safety Report 16723567 (Version 2)
Quarter: 2019Q3

REPORT INFORMATION
  Report Type: Spontaneous
  Country: FR (occurrence: FR)
  Receive Date: 20190821
  Receipt Date: 20190916
  Transmission Date: 20191005
  Serious: Yes (Life-Threatening)
  Sender: FDA-Public Use
  Company Number: FR-SA-2019SA228012

PATIENT
  Age: 72 Year
  Sex: Female
  Weight: 63 kg

DRUGS (1)
  1. LOVENOX [Suspect]
     Active Substance: ENOXAPARIN SODIUM
     Indication: PHLEBITIS
     Dosage: 12000 IU, QD
     Route: 058
     Dates: start: 20190606, end: 20190611

REACTIONS (3)
  - Abdominal wall haematoma [Recovered/Resolved]
  - Hypovolaemic shock [Recovered/Resolved]
  - Anaemia [Recovered/Resolved]

NARRATIVE: CASE EVENT DATE: 20190611
